FAERS Safety Report 20291972 (Version 2)
Quarter: 2022Q1

REPORT INFORMATION
  Report Type: Spontaneous
  Country: JP (occurrence: JP)
  Receive Date: 20220104
  Receipt Date: 20220221
  Transmission Date: 20220423
  Serious: Yes (Hospitalization, Other)
  Sender: FDA-Public Use
  Company Number: JP-NOVAST LABORATORIES INC.-2021NOV000356

PATIENT
  Age: 72 Year
  Sex: Male

DRUGS (4)
  1. OXALIPLATIN [Suspect]
     Active Substance: OXALIPLATIN
     Indication: Rectal cancer stage IV
     Dosage: 130 MILLIGRAM/SQ. METER, DAY 1ST DAY ADMINISTRATION 1 COURSE 21 DAYS
     Route: 065
  2. OXALIPLATIN [Suspect]
     Active Substance: OXALIPLATIN
     Indication: Chemotherapy
  3. CAPECITABINE [Concomitant]
     Active Substance: CAPECITABINE
     Indication: Rectal cancer stage IV
     Dosage: 2000 MILLIGRAM/SQ. METER/ DAY
     Route: 065
  4. CAPECITABINE [Concomitant]
     Active Substance: CAPECITABINE
     Indication: Chemotherapy
     Dosage: 1500 MILLIGRAM/SQ. METER/DAY, FROM 6TH COURSE
     Route: 048

REACTIONS (3)
  - Hyperammonaemia [Recovered/Resolved]
  - Splenorenal shunt [Recovering/Resolving]
  - Venoocclusive liver disease [Recovering/Resolving]
